FAERS Safety Report 25196967 (Version 4)
Quarter: 2025Q3

REPORT INFORMATION
  Report Type: Spontaneous
  Country: EU (occurrence: EU)
  Receive Date: 20250415
  Receipt Date: 20250710
  Transmission Date: 20251021
  Serious: Yes (Other)
  Sender: AUROBINDO
  Company Number: EU-MLMSERVICE-20250307-PI440495-00033-1

PATIENT
  Age: 60 Year
  Sex: Male

DRUGS (2)
  1. ASPIRIN [Suspect]
     Active Substance: ASPIRIN
     Indication: Product used for unknown indication
     Route: 065
  2. IBUPROFEN [Suspect]
     Active Substance: IBUPROFEN
     Indication: Product used for unknown indication
     Route: 065

REACTIONS (4)
  - Drug hypersensitivity [Unknown]
  - NSAID exacerbated respiratory disease [Unknown]
  - Nausea [Recovered/Resolved]
  - Vomiting [Recovered/Resolved]
